FAERS Safety Report 4995515-1 (Version None)
Quarter: 2006Q2

REPORT INFORMATION
  Report Type: 
  Country: None (occurrence: None)
  Receive Date: 20060508
  Receipt Date: 20060125
  Transmission Date: 20061013
  Serious: Yes (Other)
  Sender: FDA-Public Use
  Company Number: US-ROCHE-433846

PATIENT
  Age: 19 Year
  Sex: Male
  Weight: 68 kg

DRUGS (1)
  1. ACCUTANE [Suspect]
     Indication: ACNE
     Route: 048
     Dates: start: 19970603, end: 19970815

REACTIONS (19)
  - ABDOMINAL DISTENSION [None]
  - ANAEMIA [None]
  - COLITIS [None]
  - COLITIS ULCERATIVE [None]
  - DIARRHOEA [None]
  - EMOTIONAL DISTRESS [None]
  - GASTROINTESTINAL DISORDER [None]
  - HAEMATOCHEZIA [None]
  - HEPATIC CIRRHOSIS [None]
  - HEPATIC CYST [None]
  - HEPATIC ENZYME INCREASED [None]
  - HEPATITIS B [None]
  - HEPATITIS C [None]
  - INFLAMMATORY BOWEL DISEASE [None]
  - INSOMNIA [None]
  - IRRITABLE BOWEL SYNDROME [None]
  - LIVER DISORDER [None]
  - MENTAL DISORDER [None]
  - RECTAL HAEMORRHAGE [None]
